FAERS Safety Report 8981430 (Version 3)
Quarter: 2013Q1

REPORT INFORMATION
  Report Type: Report from Study
  Country: AU (occurrence: AU)
  Receive Date: 20121221
  Receipt Date: 20130117
  Transmission Date: 20140127
  Serious: Yes (Death, Hospitalization)
  Sender: FDA-Public Use
  Company Number: AU-SANOFI-AVENTIS-2012SA093253

PATIENT
  Age: 82 Year
  Sex: Male

DRUGS (6)
  1. CABAZITAXEL [Suspect]
     Indication: PROSTATE CANCER METASTATIC
     Route: 042
     Dates: start: 20120726, end: 20120726
  2. CABAZITAXEL [Suspect]
     Indication: PROSTATE CANCER METASTATIC
     Route: 042
     Dates: start: 20121129, end: 20121129
  3. PREDNISONE [Suspect]
     Indication: PROSTATE CANCER METASTATIC
     Route: 048
     Dates: start: 20120726
  4. VYTORIN [Concomitant]
     Indication: PROPHYLAXIS
     Route: 048
  5. ATACAND [Concomitant]
     Indication: PROPHYLAXIS
     Route: 048
     Dates: start: 20120805
  6. MAXOLON [Concomitant]
     Indication: PROPHYLAXIS
     Route: 048
     Dates: start: 20120726

REACTIONS (1)
  - Pleural effusion [Fatal]
